FAERS Safety Report 16386164 (Version 1)
Quarter: 2019Q2

REPORT INFORMATION
  Report Type: Spontaneous
  Country: US (occurrence: US)
  Receive Date: 20190603
  Receipt Date: 20190603
  Transmission Date: 20190711
  Serious: No
  Sender: FDA-Public Use
  Company Number: US-ARBOR PHARMACEUTICALS, LLC-US-2019ARB000128

PATIENT
  Age: 53 Year
  Sex: Female

DRUGS (3)
  1. HORIZANT [Suspect]
     Active Substance: GABAPENTIN ENACARBIL
     Indication: NEURALGIA
     Dosage: UNK
     Dates: start: 20181221
  2. HORIZANT [Suspect]
     Active Substance: GABAPENTIN ENACARBIL
     Dosage: 600 MG, UNK
  3. HORIZANT [Suspect]
     Active Substance: GABAPENTIN ENACARBIL
     Dosage: 300 MG, UNK

REACTIONS (4)
  - Anxiety [Unknown]
  - Fungal infection [Recovered/Resolved]
  - Dysuria [Not Recovered/Not Resolved]
  - Panic attack [Unknown]

NARRATIVE: CASE EVENT DATE: 20190120
